FAERS Safety Report 5004636-9 (Version None)
Quarter: 2006Q2

REPORT INFORMATION
  Report Type: 
  Country: None (occurrence: None)
  Receive Date: 20060512
  Receipt Date: 20060503
  Transmission Date: 20061013
  Serious: Yes (Hospitalization)
  Sender: FDA-Public Use
  Company Number: 2006058615

PATIENT
  Age: 87 Year
  Sex: Female

DRUGS (10)
  1. TAHOR (ATORVASTATIN) [Suspect]
     Indication: ILL-DEFINED DISORDER
     Dosage: 10 MG (10 MG, 1 IN 1 D), ORAL
     Route: 048
     Dates: start: 20050301, end: 20060328
  2. FUROSEMIDE [Concomitant]
  3. ACEBUTOLOL [Concomitant]
  4. METHYLDOPA [Concomitant]
  5. CLOPIDOGREL (CLOPIDOGREL) [Concomitant]
  6. POTASSIUM CHLORIDE [Concomitant]
  7. FOLIC ACID [Concomitant]
  8. ACETAMINOPHEN [Concomitant]
  9. CITALOPRAM HYDROBROMIDE [Concomitant]
  10. AMIODARONE HYDROCHLORIDE [Concomitant]

REACTIONS (3)
  - PERICARDITIS [None]
  - PLEURISY [None]
  - PYREXIA [None]
